FAERS Safety Report 12372590 (Version 1)
Quarter: 2016Q2

REPORT INFORMATION
  Report Type: Spontaneous
  Country: IN (occurrence: IN)
  Receive Date: 20160516
  Receipt Date: 20160516
  Transmission Date: 20160815
  Serious: Yes (Other)
  Sender: FDA-Public Use
  Company Number: IN-PFIZER INC-2016253444

PATIENT
  Age: 54 Year
  Sex: Female

DRUGS (3)
  1. N ACETYL CYSTEIN [Concomitant]
     Indication: IDIOPATHIC PULMONARY FIBROSIS
     Dosage: UNK
  2. AZATHIOPRINE. [Concomitant]
     Active Substance: AZATHIOPRINE
     Indication: IDIOPATHIC PULMONARY FIBROSIS
     Dosage: UNK
  3. METHYLPREDNISOLONE. [Suspect]
     Active Substance: METHYLPREDNISOLONE
     Indication: IDIOPATHIC PULMONARY FIBROSIS
     Dosage: 16 MG, 1X/DAY

REACTIONS (1)
  - Diabetes mellitus [Unknown]
